FAERS Safety Report 20550213 (Version 1)
Quarter: 2022Q1

REPORT INFORMATION
  Report Type: Spontaneous
  Country: US (occurrence: US)
  Receive Date: 20220304
  Receipt Date: 20220304
  Transmission Date: 20220423
  Serious: No
  Sender: FDA-Public Use
  Company Number: US-PURDUE PHARMA-USA-2022-0291021

PATIENT
  Age: 72 Year
  Sex: Female
  Weight: 88.435 kg

DRUGS (8)
  1. BUPRENORPHINE [Suspect]
     Active Substance: BUPRENORPHINE
     Indication: Pain
     Dosage: 15 MCG/HR, WEEKLY
     Route: 062
  2. HYDROCODONE                        /00060002/ [Concomitant]
     Indication: Back pain
     Dosage: 10-325 MG, DAILY, FOUR TABLETS A DAY
     Route: 048
     Dates: start: 2012
  3. METFORMIN HYDROCHLORIDE [Concomitant]
     Active Substance: METFORMIN HYDROCHLORIDE
     Indication: Diabetes mellitus
     Dosage: UNK, TID
     Route: 048
     Dates: start: 2019
  4. BENTYL [Concomitant]
     Active Substance: DICYCLOMINE HYDROCHLORIDE
     Indication: Product used for unknown indication
     Dosage: 20 MG, UNK, AS NEEDED
     Route: 048
     Dates: start: 1992
  5. FLEXERIL                           /00428402/ [Concomitant]
     Indication: Back pain
     Dosage: 10 MG, UNK, ONCE A DAY AS NEEDED
     Route: 048
  6. FUROSEMIDE [Concomitant]
     Active Substance: FUROSEMIDE
     Indication: Fluid retention
     Dosage: 20 MG, DAILY, THREE TABLETS A DAY
     Route: 048
  7. ROPINIROLE [Concomitant]
     Active Substance: ROPINIROLE
     Indication: Product used for unknown indication
     Dosage: 1 MG, DAILY
     Route: 048
     Dates: start: 2020
  8. MELOXICAM [Concomitant]
     Active Substance: MELOXICAM
     Indication: Product used for unknown indication
     Dosage: 7.5 UNK, TID
     Route: 048
     Dates: start: 2012

REACTIONS (2)
  - Rash [Unknown]
  - Pruritus [Unknown]

NARRATIVE: CASE EVENT DATE: 20211201
